FAERS Safety Report 17243459 (Version 1)
Quarter: 2020Q1

REPORT INFORMATION
  Report Type: Spontaneous
  Country: ES (occurrence: ES)
  Receive Date: 20200107
  Receipt Date: 20200107
  Transmission Date: 20200409
  Serious: Yes (Death, Hospitalization, Other)
  Sender: FDA-Public Use
  Company Number: ES-ALEXION PHARMACEUTICALS INC-A201914818

PATIENT
  Age: 44 Year
  Sex: Male
  Weight: 69 kg

DRUGS (2)
  1. SOLIRIS [Suspect]
     Active Substance: ECULIZUMAB
     Indication: OFF LABEL USE
  2. SOLIRIS [Suspect]
     Active Substance: ECULIZUMAB
     Indication: ANTIPHOSPHOLIPID SYNDROME
     Dosage: 900 MG, QW
     Route: 065
     Dates: start: 20190920

REACTIONS (4)
  - General physical health deterioration [Unknown]
  - Off label use [Unknown]
  - Multiple organ dysfunction syndrome [Fatal]
  - Drug ineffective [Unknown]

NARRATIVE: CASE EVENT DATE: 20190920
